FAERS Safety Report 24339909 (Version 1)
Quarter: 2024Q3

REPORT INFORMATION
  Report Type: Spontaneous
  Country: RO (occurrence: RO)
  Receive Date: 20240919
  Receipt Date: 20240919
  Transmission Date: 20241017
  Serious: Yes (Other)
  Sender: PFIZER
  Company Number: RO-ROMPHARMP-202409023

PATIENT
  Age: 63 Year
  Sex: Male

DRUGS (4)
  1. TIGECYCLINE [Suspect]
     Active Substance: TIGECYCLINE
     Indication: Acinetobacter infection
     Dosage: 200 MG; IV LOAD
     Route: 042
  2. TIGECYCLINE [Suspect]
     Active Substance: TIGECYCLINE
     Indication: Urinary tract infection
     Dosage: 100 MG, 2X/DAY
     Route: 042
  3. COLISTIN [Suspect]
     Active Substance: COLISTIN
     Indication: Acinetobacter infection
     Dosage: 6 MIU; LOADING DOSE
  4. COLISTIN [Suspect]
     Active Substance: COLISTIN
     Indication: Urinary tract infection
     Dosage: 3.5 MIU, 2X/DAY

REACTIONS (5)
  - Functional gastrointestinal disorder [Recovered/Resolved]
  - Liver injury [Recovered/Resolved]
  - Hypofibrinogenaemia [Recovered/Resolved]
  - Off label use [Unknown]
  - Drug effective for unapproved indication [Unknown]
